FAERS Safety Report 22080149 (Version 1)
Quarter: 2023Q1

REPORT INFORMATION
  Report Type: Spontaneous
  Country: FR (occurrence: FR)
  Receive Date: 20230309
  Receipt Date: 20230309
  Transmission Date: 20230417
  Serious: Yes (Life-Threatening, Other)
  Sender: FDA-Public Use
  Company Number: None

PATIENT
  Age: 71 Year
  Sex: Female
  Weight: 83 kg

DRUGS (22)
  1. LANSOPRAZOLE [Interacting]
     Active Substance: LANSOPRAZOLE
     Indication: Product used for unknown indication
     Dosage: 15 GRAM, QD
     Route: 048
     Dates: end: 20221223
  2. PREDNISONE [Interacting]
     Active Substance: PREDNISONE
     Indication: Renal transplant
     Dosage: 7.5 MILLIGRAM, QD
     Route: 048
     Dates: start: 201905, end: 20221223
  3. PREDNISONE [Interacting]
     Active Substance: PREDNISONE
     Dosage: 15 MILLIGRAM, Q1HR
     Route: 065
     Dates: start: 20230102
  4. TRAMADOL HYDROCHLORIDE [Interacting]
     Active Substance: TRAMADOL HYDROCHLORIDE
     Indication: Product used for unknown indication
     Dosage: 150 MILLIGRAM, QD
     Route: 048
     Dates: end: 20221223
  5. LERCANIDIPINE HYDROCHLORIDE [Interacting]
     Active Substance: LERCANIDIPINE HYDROCHLORIDE
     Indication: Product used for unknown indication
     Dosage: 10 GRAM, QD
     Route: 048
     Dates: end: 20221223
  6. BACTRIM [Interacting]
     Active Substance: SULFAMETHOXAZOLE\TRIMETHOPRIM
     Indication: Product used for unknown indication
     Dosage: 2.4 GRAM, QD
     Route: 048
  7. BACTRIM [Interacting]
     Active Substance: SULFAMETHOXAZOLE\TRIMETHOPRIM
     Dosage: UNK
     Route: 065
     Dates: start: 20230128
  8. FUROSEMIDE [Interacting]
     Active Substance: FUROSEMIDE
     Indication: Product used for unknown indication
     Dosage: 205 GRAM, QD
     Route: 048
  9. BISOPROLOL FUMARATE [Interacting]
     Active Substance: BISOPROLOL FUMARATE
     Indication: Product used for unknown indication
     Dosage: 5 MILLIGRAM, QD
     Route: 048
  10. ATORVASTATIN [Interacting]
     Active Substance: ATORVASTATIN
     Indication: Product used for unknown indication
     Dosage: 10 GRAM, QD
     Route: 048
     Dates: end: 20221223
  11. CALCIUM CARBONATE\CHOLECALCIFEROL [Interacting]
     Active Substance: CALCIUM CARBONATE\CHOLECALCIFEROL
     Indication: Product used for unknown indication
     Dosage: 500 MILLIGRAM, QD
     Route: 065
  12. CALCIUM CARBONATE\CHOLECALCIFEROL [Interacting]
     Active Substance: CALCIUM CARBONATE\CHOLECALCIFEROL
     Dosage: 440 MILLIGRAM, QD
     Route: 065
  13. ACETAMINOPHEN [Suspect]
     Active Substance: ACETAMINOPHEN
     Indication: Product used for unknown indication
     Dosage: 3 GRAM, QD
     Route: 065
  14. FOLIC ACID [Suspect]
     Active Substance: FOLIC ACID
     Indication: Product used for unknown indication
     Dosage: 5 MILLIGRAM, QD
     Route: 065
  15. HEPARIN [Interacting]
     Active Substance: HEPARIN SODIUM
     Indication: Product used for unknown indication
     Dosage: UNK
     Route: 065
     Dates: start: 20230113
  16. ENVARSUS XR [Interacting]
     Active Substance: TACROLIMUS
     Indication: Renal transplant
     Dosage: 3 MILLIGRAM, QD
     Route: 048
     Dates: start: 201905, end: 20221223
  17. ENVARSUS XR [Interacting]
     Active Substance: TACROLIMUS
     Dosage: UNK
     Route: 065
     Dates: start: 20230128
  18. MYCOPHENOLATE MOFETIL [Interacting]
     Active Substance: MYCOPHENOLATE MOFETIL
     Indication: Renal transplant
     Dosage: 750 MILLIGRAM, QD
     Route: 048
     Dates: start: 201905, end: 20221223
  19. COMIRNATY [Concomitant]
     Active Substance: TOZINAMERAN
     Dosage: UNK
     Dates: start: 20210326
  20. COMIRNATY [Concomitant]
     Active Substance: TOZINAMERAN
     Dosage: UNK
     Dates: start: 20210423
  21. COMIRNATY [Concomitant]
     Active Substance: TOZINAMERAN
     Dosage: UNK
     Dates: start: 20210521
  22. CASIRIVIMAB\IMDEVIMAB [Concomitant]
     Active Substance: CASIRIVIMAB\IMDEVIMAB
     Dosage: UNK
     Dates: start: 20211216

REACTIONS (6)
  - COVID-19 pneumonia [Recovering/Resolving]
  - Drug interaction [Recovering/Resolving]
  - Acute kidney injury [Recovered/Resolved]
  - Deep vein thrombosis [Unknown]
  - Sleep apnoea syndrome [Unknown]
  - Neuromyopathy [Recovering/Resolving]

NARRATIVE: CASE EVENT DATE: 20221223
